FAERS Safety Report 5015660-4 (Version None)
Quarter: 2006Q2

REPORT INFORMATION
  Report Type: 
  Country: None (occurrence: None)
  Receive Date: 20060601
  Receipt Date: 20060403
  Transmission Date: 20061013
  Serious: Yes (Death)
  Sender: FDA-Public Use
  Company Number: JP-JPN-A200601132

PATIENT
  Age: 47 Year
  Sex: Male

DRUGS (1)
  1. ZEFIX [Suspect]
     Indication: HEPATITIS B
     Dosage: 100MG PER DAY
     Route: 048
     Dates: start: 20050301, end: 20060310

REACTIONS (1)
  - PLATELET COUNT DECREASED [None]
